FAERS Safety Report 5381756-0 (Version None)
Quarter: 2007Q3

REPORT INFORMATION
  Report Type: 
  Country: None (occurrence: None)
  Receive Date: 20070709
  Receipt Date: 20070628
  Transmission Date: 20080115
  Serious: Yes (Other)
  Sender: FDA-Public Use
  Company Number: CA-AMGEN-US232437

PATIENT
  Sex: Male

DRUGS (2)
  1. ARANESP [Suspect]
     Indication: DIALYSIS
     Route: 058
  2. EPOETIN ALFA [Suspect]
     Route: 065

REACTIONS (4)
  - DIPLOPIA [None]
  - HEADACHE [None]
  - HYPERTENSION [None]
  - VITH NERVE PARALYSIS [None]
